FAERS Safety Report 18999389 (Version 1)
Quarter: 2021Q1

REPORT INFORMATION
  Report Type: Not Available
  Country: US (occurrence: US)
  Receive Date: 20210311
  Receipt Date: 20210311
  Transmission Date: 20210420
  Serious: Yes (Other)
  Sender: FDA-Public Use
  Company Number: US-NEUROCRINE BIOSCIENCES INC.-2021NBI01148

PATIENT
  Age: 78 Year
  Sex: Female

DRUGS (1)
  1. ONGENTYS [Suspect]
     Active Substance: OPICAPONE
     Indication: PARKINSON^S DISEASE

REACTIONS (4)
  - Blood pressure decreased [Unknown]
  - Suicidal ideation [Unknown]
  - Pain [Unknown]
  - Tremor [Unknown]
